FAERS Safety Report 8445328-3 (Version None)
Quarter: 2012Q2

REPORT INFORMATION
  Report Type: 
  Country: None (occurrence: None)
  Receive Date: 20120323
  Receipt Date: 20111209
  Transmission Date: 20120825
  Serious: Yes (Other)
  Sender: FDA-Public Use
  Company Number: 163-21880-11093815

PATIENT
  Age: 87 Year
  Sex: Female

DRUGS (2)
  1. REVLIMID [Suspect]
  2. REVLIMID [Suspect]
     Indication: LYMPHOMA
     Dosage: 25 MG, DAILY FOR 21 DAYS ON,    DAYS OFF, PO
     Route: 048
     Dates: start: 20110601, end: 20111127

REACTIONS (3)
  - RASH [None]
  - PRURITUS [None]
  - RASH GENERALISED [None]
